FAERS Safety Report 11833868 (Version 1)
Quarter: 2015Q4

REPORT INFORMATION
  Report Type: Spontaneous
  Country: BR (occurrence: BR)
  Receive Date: 20151214
  Receipt Date: 20151214
  Transmission Date: 20160305
  Serious: Yes (Disabling)
  Sender: FDA-Public Use
  Company Number: BR-ELI_LILLY_AND_COMPANY-BR201512000959

PATIENT
  Sex: Male

DRUGS (5)
  1. HUMALOG [Suspect]
     Active Substance: INSULIN LISPRO
     Indication: TYPE 2 DIABETES MELLITUS
     Dosage: UNK, UNKNOWN
     Route: 065
     Dates: start: 2009, end: 2012
  2. HUMULIN N [Suspect]
     Active Substance: INSULIN HUMAN
     Indication: TYPE 2 DIABETES MELLITUS
     Dosage: 34 IU, EACH MORNING
     Route: 058
     Dates: start: 2012
  3. HUMULIN N [Suspect]
     Active Substance: INSULIN HUMAN
     Dosage: 16 IU, EACH EVENING
     Route: 058
     Dates: start: 2012
  4. HUMULIN R [Suspect]
     Active Substance: INSULIN HUMAN
     Indication: TYPE 2 DIABETES MELLITUS
     Dosage: 26 IU, EACH MORNING
     Route: 058
     Dates: start: 2012
  5. HUMULIN R [Suspect]
     Active Substance: INSULIN HUMAN
     Dosage: 16 IU, BID
     Route: 058
     Dates: start: 2012

REACTIONS (4)
  - Erysipelas [Recovered/Resolved]
  - Drug administered at inappropriate site [Unknown]
  - Injection site pain [Unknown]
  - Postoperative wound infection [Recovered/Resolved]
